FAERS Safety Report 21964115 (Version 1)
Quarter: 2023Q1

REPORT INFORMATION
  Report Type: Spontaneous
  Country: DE (occurrence: DE)
  Receive Date: 20230207
  Receipt Date: 20230207
  Transmission Date: 20230418
  Serious: Yes (Hospitalization)
  Sender: FDA-Public Use
  Company Number: DE-ADRED-07218-01

PATIENT
  Age: 75 Year
  Sex: Female

DRUGS (12)
  1. APIXABAN [Suspect]
     Active Substance: APIXABAN
     Indication: Product used for unknown indication
     Dosage: 5 MILLIGRAM, BID, 5 MG, 1-0-1-0
     Route: 048
  2. EUTHYROX [Concomitant]
     Active Substance: LEVOTHYROXINE SODIUM
     Dosage: 75 MICROGRAM, QD
     Route: 048
  3. BUDESONIDE [Concomitant]
     Active Substance: BUDESONIDE
     Dosage: 160 MICROGRAM, BID, 160 ?G, 1-0-1-0
     Route: 055
  4. Eryfer [Concomitant]
     Dosage: 100 MILLIGRAM, QD, 100 MG, 1-0-0-0,
     Route: 048
  5. TORSEMIDE [Concomitant]
     Active Substance: TORSEMIDE
     Dosage: 10 MILLIGRAM, BID, 10 MG, 1-1-0-0
     Route: 048
  6. Kalinor [Concomitant]
     Dosage: 2WEEK, EFFERVESCENT TABLETS
     Route: 048
  7. FOLIC ACID [Concomitant]
     Active Substance: FOLIC ACID
     Dosage: 5 MILLIGRAM, QD, 5 MG, 1-0-0-0
     Route: 048
  8. NEBIVOLOL [Concomitant]
     Active Substance: NEBIVOLOL
     Dosage: 5 MILLIGRAM, QD, 5 MG, 1-0-0-0, TABLET
     Route: 048
  9. CHOLECALCIFEROL [Concomitant]
     Active Substance: CHOLECALCIFEROL
     Dosage: 1000 MILLIGRAM, QD, 1000 MG, 1-0-0-0,
     Route: 048
  10. AMLODIPINE\CANDESARTAN CILEXETIL [Concomitant]
     Active Substance: AMLODIPINE\CANDESARTAN CILEXETIL
     Dosage: QD, 16 PER 10 MG, 1-0-0-0,
     Route: 048
  11. FORMOTEROL [Concomitant]
     Active Substance: FORMOTEROL
     Dosage: 4.5 MICROGRAM, BID, 4.5 ?G, 1-0-1-0
     Route: 048
  12. LATANOPROST AL COMP [Concomitant]
     Dosage: BID, 1-0-1-0, TROPFEN, STRENGTH: 50MIKROGRAMM/ML
     Route: 047

REACTIONS (4)
  - Gastrooesophageal reflux disease [Recovering/Resolving]
  - Gastritis haemorrhagic [Recovering/Resolving]
  - Normochromic normocytic anaemia [Recovering/Resolving]
  - Melaena [Recovering/Resolving]

NARRATIVE: CASE EVENT DATE: 20210707
